FAERS Safety Report 25438348 (Version 1)
Quarter: 2025Q2

REPORT INFORMATION
  Report Type: Report from Study
  Country: GB (occurrence: GB)
  Receive Date: 20250616
  Receipt Date: 20250616
  Transmission Date: 20250717
  Serious: Yes (Other)
  Sender: UCB
  Company Number: GB-UCBSA-2025035015

PATIENT
  Sex: Female

DRUGS (1)
  1. BIMEKIZUMAB [Suspect]
     Active Substance: BIMEKIZUMAB
     Indication: Psoriatic arthropathy
     Dosage: 160 MILLIGRAM, EV 4 WEEKS (ONE PRE-FILLED PEN EVERY FOUR WEEKS)
     Dates: start: 20241113

REACTIONS (3)
  - Psoriatic arthropathy [Unknown]
  - Depressed mood [Unknown]
  - Rash [Unknown]

NARRATIVE: CASE EVENT DATE: 20250101
